FAERS Safety Report 15967489 (Version 3)
Quarter: 2019Q2

REPORT INFORMATION
  Report Type: Spontaneous
  Country: US (occurrence: US)
  Receive Date: 20190215
  Receipt Date: 20190419
  Transmission Date: 20190711
  Serious: No
  Sender: FDA-Public Use
  Company Number: US-SA-2019SA041650

PATIENT
  Age: 60 Year
  Sex: Female

DRUGS (2)
  1. XELJANZ [Concomitant]
     Active Substance: TOFACITINIB CITRATE
  2. KEVZARA [Suspect]
     Active Substance: SARILUMAB
     Indication: RHEUMATOID ARTHRITIS
     Dosage: 200 MG, QOW
     Route: 058
     Dates: start: 20180824, end: 20190125

REACTIONS (8)
  - Blister [Recovered/Resolved]
  - Swollen tongue [Unknown]
  - Mouth swelling [Unknown]
  - Oropharyngeal pain [Unknown]
  - Rash pruritic [Recovering/Resolving]
  - Dry mouth [Not Recovered/Not Resolved]
  - Injection site reaction [Unknown]
  - Cough [Not Recovered/Not Resolved]

NARRATIVE: CASE EVENT DATE: 20180827
